FAERS Safety Report 8589864-8 (Version None)
Quarter: 2012Q3

REPORT INFORMATION
  Report Type: 
  Country: None (occurrence: None)
  Receive Date: 20120813
  Receipt Date: 19890908
  Transmission Date: 20120928
  Serious: Yes (Life-Threatening, Hospitalization)
  Sender: FDA-Public Use
  Company Number: US-ROCHE-1098942

PATIENT
  Age: 53 Year
  Sex: Male

DRUGS (4)
  1. HEPARIN [Concomitant]
  2. ASPIRIN [Concomitant]
  3. ACTIVASE [Suspect]
     Indication: ACUTE MYOCARDIAL INFARCTION
  4. LIDOCAINE [Concomitant]
     Dosage: 4 MG PER MINUTE

REACTIONS (6)
  - ATRIOVENTRICULAR BLOCK [None]
  - ANXIETY [None]
  - ELECTROCARDIOGRAM ABNORMAL [None]
  - REPERFUSION ARRHYTHMIA [None]
  - VENTRICULAR EXTRASYSTOLES [None]
  - VENTRICULAR TACHYCARDIA [None]
